FAERS Safety Report 13472068 (Version 1)
Quarter: 2017Q2

REPORT INFORMATION
  Report Type: Other
  Country: IE (occurrence: IE)
  Receive Date: 20170424
  Receipt Date: 20170424
  Transmission Date: 20170830
  Serious: Yes (Other)
  Sender: FDA-Public Use
  Company Number: IE-SEPTODONT-201703980

PATIENT
  Age: 13 Year
  Sex: Male

DRUGS (2)
  1. IBUPROFEN. [Suspect]
     Active Substance: IBUPROFEN
     Route: 048
  2. LIGNOSPAN SPECIAL, SOLUTION FOR INJECTION 2.2ML [Suspect]
     Active Substance: EPINEPHRINE BITARTRATE\LIDOCAINE HYDROCHLORIDE
     Indication: LOCAL ANAESTHESIA
     Route: 004

REACTIONS (11)
  - Allergic respiratory disease [Recovered/Resolved]
  - Lip oedema [Recovered/Resolved]
  - Paraesthesia oral [Recovered/Resolved]
  - Conjunctivitis [Recovered/Resolved]
  - Flushing [Recovered/Resolved]
  - Angioedema [Recovered/Resolved]
  - Throat tightness [Recovered/Resolved]
  - Periorbital oedema [Recovered/Resolved]
  - Wheezing [Recovered/Resolved]
  - Chest discomfort [Recovered/Resolved]
  - Rhinorrhoea [Recovered/Resolved]
